FAERS Safety Report 20695123 (Version 1)
Quarter: 2022Q2

REPORT INFORMATION
  Report Type: Spontaneous
  Country: US (occurrence: None)
  Receive Date: 20220408
  Receipt Date: 20220408
  Transmission Date: 20220721
  Serious: Yes (Hospitalization)
  Sender: FDA-Public Use
  Company Number: None

PATIENT
  Age: 66 Year
  Sex: Male
  Weight: 94.5 kg

DRUGS (6)
  1. GABAPENTIN [Suspect]
     Active Substance: GABAPENTIN
     Indication: Neuralgia
     Route: 048
     Dates: start: 20220325, end: 20220406
  2. LVAD + pacemaker/defibrillator [Concomitant]
  3. numerous CHF medications [Concomitant]
  4. POTASSIUM [Concomitant]
     Active Substance: POTASSIUM
  5. IRON [Concomitant]
     Active Substance: IRON
  6. MULTI-VITAMIN [Concomitant]
     Active Substance: .ALPHA.-TOCOPHEROL ACETATE, DL-\ASCORBIC ACID\CYANOCOBALAMIN\FLUORIDE ION\FOLIC ACID\NIACIN\PYRIDOXI

REACTIONS (7)
  - Confusional state [None]
  - Hallucination [None]
  - Oedema peripheral [None]
  - Eye movement disorder [None]
  - Dyskinesia [None]
  - Urine output decreased [None]
  - Rash [None]

NARRATIVE: CASE EVENT DATE: 20220325
